FAERS Safety Report 24106349 (Version 1)
Quarter: 2024Q3

REPORT INFORMATION
  Report Type: Spontaneous
  Country: US (occurrence: US)
  Receive Date: 20240717
  Receipt Date: 20240717
  Transmission Date: 20241017
  Serious: No
  Sender: Phathom Pharmaceuticals
  Company Number: US-PHATHOM PHARMACEUTICALS INC.-2024PHT00480

PATIENT
  Age: 64 Year
  Sex: Female

DRUGS (6)
  1. VOQUEZNA [Suspect]
     Active Substance: VONOPRAZAN FUMARATE
     Indication: Gastrooesophageal reflux disease
     Dosage: 20 MG, 1X/DAY
     Route: 048
     Dates: start: 20240514, end: 20240617
  2. BRETHINE [Concomitant]
     Active Substance: TERBUTALINE SULFATE
  3. ALBUTEROL [Concomitant]
     Active Substance: ALBUTEROL
  4. UPTRAVI [Concomitant]
     Active Substance: SELEXIPAG
  5. SILDENAFIL [Concomitant]
     Active Substance: SILDENAFIL
  6. CALCIUM\VITAMIN D [Concomitant]
     Active Substance: CALCIUM\VITAMIN D

REACTIONS (2)
  - Abnormal loss of weight [Unknown]
  - Diarrhoea [Unknown]

NARRATIVE: CASE EVENT DATE: 20240501
